FAERS Safety Report 11638894 (Version 2)
Quarter: 2015Q4

REPORT INFORMATION
  Report Type: Other
  Country: GB (occurrence: GB)
  Receive Date: 20151018
  Receipt Date: 20151018
  Transmission Date: 20160304
  Serious: Yes (Other)
  Sender: FDA-Public Use
  Company Number: GB-DEXPHARM-20151959

PATIENT
  Age: 60 Year
  Sex: Female

DRUGS (2)
  1. WARFARIN [Concomitant]
     Active Substance: WARFARIN
     Indication: ANTIPHOSPHOLIPID SYNDROME
  2. OMEPRAZOLE. [Suspect]
     Active Substance: OMEPRAZOLE
     Indication: OESOPHAGITIS

REACTIONS (3)
  - Antiphospholipid syndrome [Unknown]
  - Subacute cutaneous lupus erythematosus [Recovered/Resolved]
  - Disease recurrence [Recovered/Resolved]
